FAERS Safety Report 8847523 (Version 2)
Quarter: 2013Q2

REPORT INFORMATION
  Report Type: Spontaneous
  Country: CA (occurrence: CA)
  Receive Date: 20121018
  Receipt Date: 20130604
  Transmission Date: 20140414
  Serious: Yes (Other)
  Sender: FDA-Public Use
  Company Number: CA-ELI_LILLY_AND_COMPANY-CA201210001788

PATIENT
  Age: 44 Year
  Sex: Female
  Weight: 44 kg

DRUGS (2)
  1. CYMBALTA [Suspect]
     Indication: FIBROMYALGIA
     Dosage: 30 MG, UNK
     Route: 048
     Dates: start: 20110909
  2. CYMBALTA [Suspect]
     Dosage: 60 MG, UNK
     Dates: end: 20120215

REACTIONS (13)
  - Self-injurious ideation [Recovered/Resolved]
  - Dyspnoea [Recovered/Resolved]
  - Influenza like illness [Recovered/Resolved]
  - Mood swings [Recovered/Resolved]
  - Panic attack [Recovered/Resolved]
  - Acrophobia [Recovered/Resolved]
  - Apathy [Recovered/Resolved]
  - Confusional state [Recovered/Resolved]
  - Tinnitus [Recovered/Resolved]
  - Headache [Recovered/Resolved]
  - Vision blurred [Recovered/Resolved]
  - Feeling abnormal [Recovered/Resolved]
  - Drug withdrawal syndrome [Recovered/Resolved]
